FAERS Safety Report 18187031 (Version 1)
Quarter: 2020Q3

REPORT INFORMATION
  Report Type: Spontaneous
  Country: US (occurrence: US)
  Receive Date: 20200824
  Receipt Date: 20200824
  Transmission Date: 20201103
  Serious: Yes (Hospitalization, Other)
  Sender: FDA-Public Use
  Company Number: US-GLOBAL BLOOD THERAPEUTICS INC-US-GBT-20-02371

PATIENT
  Age: 44 Year
  Sex: Female

DRUGS (1)
  1. OXBRYTA [Suspect]
     Active Substance: VOXELOTOR
     Indication: SICKLE CELL DISEASE
     Route: 048
     Dates: start: 20200711

REACTIONS (6)
  - Nausea [Recovered/Resolved]
  - Sickle cell anaemia with crisis [Unknown]
  - Diarrhoea [Recovered/Resolved]
  - Blood potassium decreased [Unknown]
  - Vomiting [Recovered/Resolved]
  - Pneumonia [Unknown]

NARRATIVE: CASE EVENT DATE: 2020
